FAERS Safety Report 7740204-3 (Version None)
Quarter: 2011Q3

REPORT INFORMATION
  Report Type: 
  Country: None (occurrence: None)
  Receive Date: 20110909
  Receipt Date: 20110909
  Transmission Date: 20111222
  Serious: No
  Sender: FDA-Public Use
  Company Number: None

PATIENT
  Sex: Female
  Weight: 63.502 kg

DRUGS (2)
  1. PEGINTERFERON ALFA-2B [Concomitant]
  2. PEGINTERFERON ALFA-2B [Suspect]
     Indication: MALIGNANT MELANOMA
     Dosage: 400MCG
     Route: 058
     Dates: start: 20110603, end: 20110829

REACTIONS (2)
  - PRODUCT LABEL CONFUSION [None]
  - INCORRECT DOSE ADMINISTERED [None]
